FAERS Safety Report 9443998 (Version 2)
Quarter: 2013Q3

REPORT INFORMATION
  Report Type: Report from Study
  Country: JP (occurrence: JP)
  Receive Date: 20130807
  Receipt Date: 20130822
  Transmission Date: 20140515
  Serious: Yes (Death)
  Sender: FDA-Public Use
  Company Number: JP-ROCHE-1257505

PATIENT
  Age: 8 Year
  Sex: Female

DRUGS (1)
  1. RITUXIMAB [Suspect]
     Indication: LIVER TRANSPLANT
     Route: 065

REACTIONS (2)
  - Histiocytosis haematophagic [Fatal]
  - Cytomegalovirus infection [Recovered/Resolved]
